FAERS Safety Report 6378886-3 (Version None)
Quarter: 2009Q3

REPORT INFORMATION
  Report Type: 
  Country: None (occurrence: None)
  Receive Date: 20090928
  Receipt Date: 20090804
  Transmission Date: 20100115
  Serious: No
  Sender: FDA-Public Use
  Company Number: US-BAYER-200929014NA

PATIENT
  Age: 20 Year
  Sex: Female
  Weight: 83 kg

DRUGS (2)
  1. MIRENA [Suspect]
     Indication: CONTRACEPTION
     Dosage: CONTINUOUS
     Route: 015
     Dates: start: 20061001, end: 20070901
  2. MIDOL [Concomitant]
     Indication: ABDOMINAL PAIN

REACTIONS (2)
  - ABDOMINAL PAIN [None]
  - POLYMENORRHOEA [None]
